FAERS Safety Report 9139183 (Version 1)
Quarter: 2013Q1

REPORT INFORMATION
  Report Type: Spontaneous
  Country: US (occurrence: US)
  Receive Date: 20130305
  Receipt Date: 20130305
  Transmission Date: 20140127
  Serious: Yes (Hospitalization, Other)
  Sender: FDA-Public Use
  Company Number: US-ENDO PHARMACEUTICALS INC.-SPLN20120082

PATIENT
  Age: 6 Year
  Sex: Female

DRUGS (2)
  1. SUPPRELIN LA [Suspect]
     Indication: PRECOCIOUS PUBERTY
     Route: 058
     Dates: start: 20120309, end: 20120524
  2. SUPPRELIN LA [Suspect]
     Dosage: 50 MG
     Route: 058
     Dates: start: 20101230

REACTIONS (1)
  - Infection [Recovered/Resolved]
